FAERS Safety Report 23863484 (Version 1)
Quarter: 2024Q2

REPORT INFORMATION
  Report Type: Spontaneous
  Country: CA (occurrence: None)
  Receive Date: 20240516
  Receipt Date: 20240516
  Transmission Date: 20240716
  Serious: Yes (Hospitalization)
  Sender: FDA-Public Use
  Company Number: 2024A109524

PATIENT
  Age: 35 Year
  Sex: Female

DRUGS (16)
  1. QUETIAPINE [Suspect]
     Active Substance: QUETIAPINE
     Indication: Product used for unknown indication
     Route: 048
  2. PROPRANOLOL [Suspect]
     Active Substance: PROPRANOLOL HYDROCHLORIDE
     Indication: Product used for unknown indication
  3. CLONAZEPAM [Suspect]
     Active Substance: CLONAZEPAM
     Indication: Product used for unknown indication
  4. CLONAZEPAM [Suspect]
     Active Substance: CLONAZEPAM
     Indication: Product used for unknown indication
  5. COCAINE [Suspect]
     Active Substance: COCAINE
     Indication: Product used for unknown indication
  6. ALCOHOL [Suspect]
     Active Substance: ALCOHOL
     Indication: Product used for unknown indication
  7. AMPHETAMINE\DEXTROAMPHETAMINE [Suspect]
     Active Substance: AMPHETAMINE\DEXTROAMPHETAMINE
     Indication: Product used for unknown indication
  8. FENTANYL [Suspect]
     Active Substance: FENTANYL\FENTANYL CITRATE
     Indication: Product used for unknown indication
  9. LEVOTHYROXINE SODIUM [Suspect]
     Active Substance: LEVOTHYROXINE SODIUM
     Indication: Product used for unknown indication
  10. METHADONE [Suspect]
     Active Substance: METHADONE HYDROCHLORIDE
     Indication: Product used for unknown indication
  11. METHADONE [Suspect]
     Active Substance: METHADONE HYDROCHLORIDE
     Indication: Product used for unknown indication
  12. METHAMPHETAMINE [Suspect]
     Active Substance: METHAMPHETAMINE
     Indication: Product used for unknown indication
  13. MORPHINE [Suspect]
     Active Substance: MORPHINE
     Indication: Product used for unknown indication
  14. MORPHINE [Suspect]
     Active Substance: MORPHINE
     Indication: Product used for unknown indication
  15. TEMAZEPAM [Suspect]
     Active Substance: TEMAZEPAM
     Indication: Product used for unknown indication
  16. PRAZOSIN [Suspect]
     Active Substance: PRAZOSIN
     Indication: Product used for unknown indication

REACTIONS (10)
  - Abdominal pain upper [Unknown]
  - Anxiety [Unknown]
  - Arthralgia [Unknown]
  - Myalgia [Unknown]
  - Mydriasis [Unknown]
  - Piloerection [Unknown]
  - Psychiatric symptom [Unknown]
  - Restlessness [Unknown]
  - Substance use disorder [Unknown]
  - Suicidal ideation [Unknown]
